FAERS Safety Report 25755483 (Version 1)
Quarter: 2025Q3

REPORT INFORMATION
  Report Type: Spontaneous
  Country: CA (occurrence: CA)
  Receive Date: 20250903
  Receipt Date: 20250903
  Transmission Date: 20251020
  Serious: Yes (Other)
  Sender: MERCK SHARP & DOHME LLC
  Company Number: CA-009507513-2324735

PATIENT
  Age: 62 Year
  Sex: Female
  Weight: 60 kg

DRUGS (5)
  1. KEYTRUDA [Suspect]
     Active Substance: PEMBROLIZUMAB
     Indication: Lung adenocarcinoma stage IV
     Dosage: 115 MG, 1 EVERY 4 WEEKS; DOSAGE FORM: SOLUTION INTRAVENOUS 4 ML SINGLE USE VIAL.
     Route: 042
  2. ISONIAZID [Suspect]
     Active Substance: ISONIAZID
     Indication: Latent tuberculosis
     Dosage: 300.0 MILLIGRAM, 1 EVERY 1 DAYS
     Route: 048
  3. LEFLUNOMIDE [Suspect]
     Active Substance: LEFLUNOMIDE
     Indication: Arthritis
     Dosage: 20 MG, 1 EVERY 1 DAYS
     Route: 048
  4. PEMETREXED DISODIUM [Suspect]
     Active Substance: PEMETREXED DISODIUM
     Indication: Lung adenocarcinoma stage IV
     Dosage: 810 MG, 1 EVERY 8 WEEKS; DOSAGE FORM: POWDER FOR SOLUTION INTRAVENOUS
     Route: 042
  5. ROFECOXIB [Suspect]
     Active Substance: ROFECOXIB
     Indication: Latent tuberculosis
     Dosage: 600 MG, 1 EVERY 1 DAYS
     Route: 048

REACTIONS (2)
  - Hepatotoxicity [Recovered/Resolved]
  - Liver function test abnormal [Recovered/Resolved]
